FAERS Safety Report 10367528 (Version 1)
Quarter: 2014Q3

REPORT INFORMATION
  Report Type: Spontaneous
  Country: US (occurrence: None)
  Receive Date: 20140806
  Receipt Date: 20140806
  Transmission Date: 20150326
  Serious: Yes (Disabling)
  Sender: FDA-Public Use
  Company Number: None

PATIENT
  Age: 63 Year
  Sex: Female
  Weight: 61.24 kg

DRUGS (11)
  1. VITAMIN C [Concomitant]
     Active Substance: ASCORBIC ACID
  2. VITAMIN A [Concomitant]
     Active Substance: VITAMIN A
  3. VITAMIN B [Concomitant]
     Active Substance: VITAMIN B
  4. VITAMIN E [Concomitant]
     Active Substance: .ALPHA.-TOCOPHEROL
  5. IRON [Concomitant]
     Active Substance: IRON
  6. ZINC [Concomitant]
     Active Substance: ZINC\ZINC CHLORIDE
  7. THYROXINE [Concomitant]
     Active Substance: LEVOTHYROXINE
  8. VITAMIN D [Concomitant]
     Active Substance: CHOLECALCIFEROL
  9. CEPHALEXIN. [Suspect]
     Active Substance: CEPHALEXIN
     Indication: ABSCESS
     Route: 048
     Dates: start: 20130210, end: 20130301
  10. CALCIUM [Concomitant]
     Active Substance: CALCIUM
  11. FLAX OIL [Concomitant]

REACTIONS (3)
  - Gait disturbance [None]
  - Joint swelling [None]
  - Arthralgia [None]

NARRATIVE: CASE EVENT DATE: 20130301
